FAERS Safety Report 9652936 (Version 2)
Quarter: 2014Q1

REPORT INFORMATION
  Report Type: Spontaneous
  Country: JP (occurrence: JP)
  Receive Date: 20131029
  Receipt Date: 20140313
  Transmission Date: 20141002
  Serious: Yes (Hospitalization)
  Sender: FDA-Public Use
  Company Number: JP-BRISTOL-MYERS SQUIBB COMPANY-19658764

PATIENT
  Age: 67 Year
  Sex: Male
  Weight: 71 kg

DRUGS (7)
  1. ERBITUX SOLN FOR INF 5MG/ML [Suspect]
     Indication: GINGIVAL CANCER
     Dosage: 440MG:23AUG13-04OCT13:42DAYS?720MG:02AUG13 1 IN 1 DAY
     Route: 041
     Dates: start: 20130802, end: 20131004
  2. TS-1 [Concomitant]
     Indication: GINGIVAL CANCER
     Dosage: CAP.?06SEP13-03OCT13:40MG:27 DAYS.
     Route: 048
     Dates: start: 20130823, end: 20131003
  3. DEXART [Concomitant]
     Indication: PROPHYLAXIS
     Route: 041
     Dates: start: 20130802, end: 20131004
  4. RESTAMIN [Concomitant]
     Indication: PROPHYLAXIS
     Dosage: TAB
     Route: 048
     Dates: start: 20130802, end: 20131004
  5. MINOCYCLINE HCL [Concomitant]
     Indication: PROPHYLAXIS
     Dosage: CAP
     Route: 048
     Dates: start: 20130802, end: 20131030
  6. HYALEIN [Concomitant]
     Indication: KERATITIS
     Dosage: DROPS
     Route: 047
     Dates: start: 20100105
  7. TRAMACET [Concomitant]
     Indication: GINGIVAL CANCER
     Dosage: 1 DF:1 TAB UNIT NOS.
     Route: 048
     Dates: start: 20130802

REACTIONS (3)
  - Corneal perforation [Recovered/Resolved]
  - Ulcerative keratitis [Recovered/Resolved]
  - Tumour haemorrhage [Recovered/Resolved]
